FAERS Safety Report 17439444 (Version 1)
Quarter: 2020Q1

REPORT INFORMATION
  Report Type: Spontaneous
  Country: US (occurrence: US)
  Receive Date: 20200205
  Receipt Date: 20200205
  Transmission Date: 20200409
  Serious: No
  Sender: FDA-Public Use
  Company Number: None

PATIENT
  Age: 40 Year
  Sex: Male

DRUGS (2)
  1. OCTREOTIDE INJ 50MCG/ML [Suspect]
     Active Substance: OCTREOTIDE ACETATE
     Indication: COLITIS
     Route: 058
     Dates: start: 202002
  2. OCTREOTIDE INJ 50MCG/ML [Suspect]
     Active Substance: OCTREOTIDE ACETATE
     Indication: GASTROINTESTINAL TOXICITY
     Route: 058
     Dates: start: 202002

REACTIONS (1)
  - Off label use [None]

NARRATIVE: CASE EVENT DATE: 20200205
